FAERS Safety Report 23208775 (Version 1)
Quarter: 2023Q4

REPORT INFORMATION
  Report Type: Spontaneous
  Country: US (occurrence: US)
  Receive Date: 20231121
  Receipt Date: 20231121
  Transmission Date: 20240110
  Serious: Yes (Hospitalization)
  Sender: FDA-Public Use
  Company Number: US-drreddys-LIT/USA/23/0183521

PATIENT
  Age: 16 Year
  Sex: Female

DRUGS (3)
  1. LEVOFLOXACIN [Suspect]
     Active Substance: LEVOFLOXACIN
     Indication: Ureaplasma infection
  2. LEVOFLOXACIN [Suspect]
     Active Substance: LEVOFLOXACIN
  3. DOXYCYCLINE [Concomitant]
     Active Substance: DOXYCYCLINE
     Indication: Product used for unknown indication

REACTIONS (2)
  - Hyperammonaemia [Recovering/Resolving]
  - Polyarthritis [Recovering/Resolving]
